FAERS Safety Report 10710929 (Version 1)
Quarter: 2015Q1

REPORT INFORMATION
  Report Type: Spontaneous
  Country: US (occurrence: US)
  Receive Date: 20150114
  Receipt Date: 20150114
  Transmission Date: 20150721
  Serious: Yes (Hospitalization, Other)
  Sender: FDA-Public Use
  Company Number: US-AMGEN-USASP2013015058

PATIENT
  Age: 55 Year
  Sex: Male
  Weight: 101.5 kg

DRUGS (3)
  1. LEFLUNOMIDE. [Concomitant]
     Active Substance: LEFLUNOMIDE
     Dosage: UNK
  2. SULFASALAZINE. [Suspect]
     Active Substance: SULFASALAZINE
     Indication: PRODUCT USED FOR UNKNOWN INDICATION
     Dosage: UNK
     Route: 065
  3. ENBREL [Suspect]
     Active Substance: ETANERCEPT
     Indication: RHEUMATOID ARTHRITIS
     Dosage: 50 MG, QWK
     Route: 058
     Dates: start: 20121101

REACTIONS (15)
  - Rib fracture [Not Recovered/Not Resolved]
  - White blood cell count decreased [Unknown]
  - Device breakage [Not Recovered/Not Resolved]
  - Coronary artery occlusion [Recovered/Resolved]
  - Postoperative thoracic procedure complication [Not Recovered/Not Resolved]
  - Coma [Unknown]
  - Malaise [Not Recovered/Not Resolved]
  - Myocardial infarction [Recovered/Resolved]
  - Impaired healing [Unknown]
  - Gait disturbance [Recovered/Resolved]
  - Musculoskeletal chest pain [Not Recovered/Not Resolved]
  - Chest discomfort [Not Recovered/Not Resolved]
  - Rheumatoid arthritis [Unknown]
  - Chest pain [Not Recovered/Not Resolved]
  - Pulmonary fibrosis [Unknown]

NARRATIVE: CASE EVENT DATE: 2012
